FAERS Safety Report 25642875 (Version 2)
Quarter: 2025Q3

REPORT INFORMATION
  Report Type: Spontaneous
  Country: CA (occurrence: CA)
  Receive Date: 20250805
  Receipt Date: 20250807
  Transmission Date: 20251020
  Serious: Yes (Other)
  Sender: CELLTRION
  Company Number: CA-CELLTRION INC.-2025CA024383

PATIENT

DRUGS (2)
  1. YUFLYMA [Suspect]
     Active Substance: ADALIMUMAB-AATY
     Indication: Hidradenitis
     Dosage: MAINTENANCE - 40 MG - SC (SUBCUTANEOUS) EVERY 1 WEEKS
     Route: 058
     Dates: start: 20250617
  2. YUFLYMA [Suspect]
     Active Substance: ADALIMUMAB-AATY

REACTIONS (5)
  - Cholecystectomy [Unknown]
  - Intentional dose omission [Unknown]
  - Device malfunction [Unknown]
  - Incorrect dose administered [Unknown]
  - Product use issue [Unknown]
